FAERS Safety Report 24975060 (Version 3)
Quarter: 2025Q4

REPORT INFORMATION
  Report Type: Spontaneous
  Country: GB (occurrence: GB)
  Receive Date: 20250217
  Receipt Date: 20251112
  Transmission Date: 20260117
  Serious: Yes (Congenital Anomaly, Other)
  Sender: TEVA
  Company Number: None

PATIENT
  Age: 32 Year
  Sex: Female

DRUGS (12)
  1. EPIRUBICIN [Suspect]
     Active Substance: EPIRUBICIN
     Indication: Breast cancer in situ
     Dosage: 90MG/M2 IV GIVEN 3 WEEKLY 30.8.24, LAST DOSE 11.10.24
     Route: 042
     Dates: start: 20240830, end: 20241011
  2. DOCETAXEL [Suspect]
     Active Substance: DOCETAXEL
     Indication: Breast cancer in situ
     Dosage: 100MG/M2 IV GIVEN 3 WEEKLY 1.11.24, LAST DOSE 27.12.24
     Route: 042
     Dates: start: 20241101, end: 20241227
  3. CYCLOPHOSPHAMIDE [Suspect]
     Active Substance: CYCLOPHOSPHAMIDE
     Indication: Breast cancer in situ
     Dosage: 600MG/M2 IV GIVEN 3 WEEKLY 30.8.24, LAST DOSE 11.10.24
     Route: 042
     Dates: start: 20240830, end: 20241011
  4. ZOLEDRONIC ACID [Suspect]
     Active Substance: ZOLEDRONIC ACID
     Indication: Breast cancer in situ
     Dosage: 4MG IV GIVEN 6 WEEKLY 20.9.24, LAST DOSE 13.12.24
     Route: 042
     Dates: start: 20240920, end: 20241213
  5. GOSERELIN [Suspect]
     Active Substance: GOSERELIN
     Indication: Breast cancer in situ
     Dosage: 3.6MG S/C 4 WEEKLY 20.9.24; LAST DOSE 10.1.25
     Route: 058
     Dates: start: 20240920, end: 20250110
  6. Akynzeo [Concomitant]
     Indication: Product used for unknown indication
     Route: 048
  7. DEXAMETHASONE [Concomitant]
     Active Substance: DEXAMETHASONE
     Indication: Product used for unknown indication
     Route: 048
  8. GRANISETRON [Concomitant]
     Active Substance: GRANISETRON
     Indication: Product used for unknown indication
     Route: 042
  9. FLUCONAZOLE [Concomitant]
     Active Substance: FLUCONAZOLE
     Indication: Product used for unknown indication
     Route: 048
  10. LEVOFLOXACIN [Concomitant]
     Active Substance: LEVOFLOXACIN
     Indication: Product used for unknown indication
     Route: 048
  11. FILGRASTIM [Concomitant]
     Active Substance: FILGRASTIM
     Indication: Product used for unknown indication
     Route: 058
  12. METOCLOPRAMIDE [Concomitant]
     Active Substance: METOCLOPRAMIDE
     Indication: Product used for unknown indication
     Route: 048

REACTIONS (2)
  - Ultrasound foetal abnormal [Unknown]
  - Maternal exposure during pregnancy [Unknown]
